FAERS Safety Report 6690471-2 (Version None)
Quarter: 2010Q2

REPORT INFORMATION
  Report Type: 
  Country: None (occurrence: None)
  Receive Date: 20100421
  Receipt Date: 20100416
  Transmission Date: 20101027
  Serious: Yes (Hospitalization)
  Sender: FDA-Public Use
  Company Number: KR-ELI_LILLY_AND_COMPANY-KR201004004198

PATIENT
  Age: 52 Year
  Sex: Female

DRUGS (3)
  1. HUMALOG MIX 75/25 [Suspect]
     Indication: TYPE 2 DIABETES MELLITUS
     Dosage: 24 IU, 2/D
     Route: 058
     Dates: start: 20091231, end: 20100101
  2. HUMALOG MIX 75/25 [Suspect]
     Dosage: 30 IU, EACH MORNING
     Route: 058
     Dates: start: 20100101
  3. HUMALOG MIX 75/25 [Suspect]
     Dosage: 8 IU, EACH EVENING
     Route: 058
     Dates: start: 20100101

REACTIONS (1)
  - CATARACT [None]
